FAERS Safety Report 6622027-1 (Version None)
Quarter: 2010Q1

REPORT INFORMATION
  Report Type: 
  Country: None (occurrence: None)
  Receive Date: 20100223
  Receipt Date: 20091124
  Transmission Date: 20100710
  Serious: No
  Sender: FDA-Public Use
  Company Number: 002911

PATIENT
  Sex: Female

DRUGS (5)
  1. CIMZIA [Suspect]
     Dosage: 400 MG 1X/MONTH SUBCUTANEOUS
     Route: 058
     Dates: start: 20090806
  2. ZOCOR [Concomitant]
  3. DAILY MULTIVITAMIN [Concomitant]
  4. COQ10 [Concomitant]
  5. ACIDOPHILUS [Concomitant]

REACTIONS (1)
  - INFLUENZA LIKE ILLNESS [None]
